FAERS Safety Report 8540649-8 (Version None)
Quarter: 2012Q3

REPORT INFORMATION
  Report Type: 
  Country: None (occurrence: None)
  Receive Date: 20120726
  Receipt Date: 20120716
  Transmission Date: 20120928
  Serious: Yes (Other)
  Sender: FDA-Public Use
  Company Number: US-BRISTOL-MYERS SQUIBB COMPANY-16769093

PATIENT
  Age: 54 Year
  Sex: Female
  Weight: 73 kg

DRUGS (2)
  1. AVALIDE [Suspect]
     Indication: HYPERTENSION
     Dates: start: 20000101
  2. AVAPRO [Suspect]

REACTIONS (3)
  - VERTIGO [None]
  - RENAL FAILURE CHRONIC [None]
  - WEIGHT DECREASED [None]
